FAERS Safety Report 9254381 (Version 2)
Quarter: 2013Q2

REPORT INFORMATION
  Report Type: Spontaneous
  Country: FR (occurrence: None)
  Receive Date: 20130419
  Receipt Date: 20130419
  Transmission Date: 20140414
  Serious: Yes (Other)
  Sender: FDA-Public Use
  Company Number: TPG2013A00153

PATIENT
  Age: 54 Year
  Sex: Male

DRUGS (7)
  1. ALOGLIPTIN BENZOATE [Suspect]
     Indication: TYPE 2 DIABETES MELLITUS
     Route: 048
     Dates: start: 20110121, end: 20130131
  2. ASPIRIN (ACETYLSALICYLIC ACID) [Concomitant]
  3. BISOPROLOL (BISOPROLOL) [Concomitant]
  4. METFORMIN (METFORMIN) [Concomitant]
  5. PERINDOPRIL (PERINDOPRIL) [Concomitant]
  6. PRASUGREL (PRASUGREL) [Concomitant]
  7. PRAVASTINE (PRAVASTATIN SODIUM) [Concomitant]

REACTIONS (1)
  - Lipase increased [None]
